FAERS Safety Report 15037393 (Version 1)
Quarter: 2018Q2

REPORT INFORMATION
  Report Type: Spontaneous
  Country: DE (occurrence: DE)
  Receive Date: 20180620
  Receipt Date: 20180620
  Transmission Date: 20180711
  Serious: Yes (Hospitalization)
  Sender: FDA-Public Use
  Company Number: DE-TEVA-2018-DE-906773

PATIENT
  Age: 59 Year
  Sex: Female

DRUGS (2)
  1. BACLOFEN- RATIOPHARM 10 MG TABLETTEN [Suspect]
     Active Substance: BACLOFEN
     Indication: MULTIPLE SCLEROSIS
     Dosage: 20 MILLIGRAM DAILY; ONE TABLET IN THE MORNING AND ONE TABLET IN THE EVENING FOR A LONG TIME
     Route: 048
  2. BACLOFEN- RATIOPHARM 10 MG TABLETTEN [Suspect]
     Active Substance: BACLOFEN
     Dosage: 200 MILLIGRAM DAILY; 100 MG BACLOFEN TWICE DAILY DUE TO A TRANSMISSION ERROR IN HER MEDICATION LIST,
     Route: 048
     Dates: start: 20180429

REACTIONS (9)
  - Incorrect dose administered [Recovered/Resolved]
  - Muscular weakness [Not Recovered/Not Resolved]
  - Muscular weakness [Recovered/Resolved]
  - Transcription medication error [None]
  - Accidental overdose [Recovered/Resolved]
  - Wheelchair user [Not Recovered/Not Resolved]
  - Hemiparesis [Unknown]
  - Musculoskeletal disorder [None]
  - Coma [Recovered/Resolved]

NARRATIVE: CASE EVENT DATE: 2018
